FAERS Safety Report 7760090-5 (Version None)
Quarter: 2011Q3

REPORT INFORMATION
  Report Type: 
  Country: None (occurrence: None)
  Receive Date: 20110919
  Receipt Date: 20110913
  Transmission Date: 20111222
  Serious: Yes (Other)
  Sender: FDA-Public Use
  Company Number: CHPA2011US12360

PATIENT
  Age: 14 Year
  Sex: Male
  Weight: 77.098 kg

DRUGS (3)
  1. EXCEDRIN (MIGRAINE) [Suspect]
     Dosage: MORE THAN 2 PILLS PER DAY, UNK
     Route: 048
  2. EXCEDRIN (MIGRAINE) [Suspect]
     Indication: MIGRAINE
     Dosage: 2 DF, Q6H
     Route: 048
     Dates: start: 20110910, end: 20110912
  3. EXCEDRIN (MIGRAINE) [Suspect]
     Indication: HEADACHE
     Dosage: UNK, UNK
     Route: 048
     Dates: start: 20100101

REACTIONS (7)
  - HEADACHE [None]
  - OVERDOSE [None]
  - CONCUSSION [None]
  - SWELLING FACE [None]
  - LIP SWELLING [None]
  - INCORRECT DOSE ADMINISTERED [None]
  - FALL [None]
